FAERS Safety Report 24963287 (Version 1)
Quarter: 2025Q1

REPORT INFORMATION
  Report Type: Report from Study
  Country: US (occurrence: US)
  Receive Date: 20250213
  Receipt Date: 20250213
  Transmission Date: 20250409
  Serious: Yes (Hospitalization)
  Sender: UCB
  Company Number: US-UCBSA-2025006230

PATIENT
  Sex: Male

DRUGS (1)
  1. ROTIGOTINE [Suspect]
     Active Substance: ROTIGOTINE
     Indication: Parkinson^s disease
     Dosage: 8 MILLIGRAM, ONCE DAILY (QD) (EVERY 24 HOUR)
     Route: 062

REACTIONS (2)
  - Hospitalisation [Not Recovered/Not Resolved]
  - Thrombosis [Recovering/Resolving]
